FAERS Safety Report 10272678 (Version 1)
Quarter: 2014Q2

REPORT INFORMATION
  Report Type: Spontaneous
  Country: US (occurrence: None)
  Receive Date: 20140627
  Receipt Date: 20140627
  Transmission Date: 20141212
  Serious: Yes (Hospitalization)
  Sender: FDA-Public Use
  Company Number: None

PATIENT
  Age: 60 Year
  Sex: Female

DRUGS (7)
  1. ESCITALOPRAM [Suspect]
     Dosage: 1, QD, ORAL
     Route: 048
     Dates: start: 20140612, end: 20140612
  2. METOPROLOL TART [Concomitant]
  3. POTASSIUM CL [Concomitant]
  4. LISINOPRIL/HCTZ [Concomitant]
  5. AMLODIPINE [Concomitant]
  6. ATORVASTATIN [Concomitant]
  7. OMEPRAZOLE [Concomitant]

REACTIONS (9)
  - Nausea [None]
  - Vomiting [None]
  - Dizziness [None]
  - Loss of consciousness [None]
  - Fall [None]
  - Ankle fracture [None]
  - Diarrhoea [None]
  - Defaecation urgency [None]
  - Dry mouth [None]
